FAERS Safety Report 8210238-3 (Version None)
Quarter: 2012Q1

REPORT INFORMATION
  Report Type: 
  Country: None (occurrence: None)
  Receive Date: 20120314
  Receipt Date: 20111212
  Transmission Date: 20120608
  Serious: No
  Sender: FDA-Public Use
  Company Number: US-ASTRAZENECA-2011SE75163

PATIENT
  Sex: Male

DRUGS (4)
  1. COLACE [Concomitant]
     Indication: FAECES HARD
  2. ASPIRIN [Concomitant]
  3. TOPROL-XL [Suspect]
     Indication: HYPERTENSION
     Route: 048
  4. LISINOPRIL [Concomitant]

REACTIONS (1)
  - GLOSSODYNIA [None]
